FAERS Safety Report 24636320 (Version 1)
Quarter: 2024Q4

REPORT INFORMATION
  Report Type: Spontaneous
  Country: IT (occurrence: IT)
  Receive Date: 20241119
  Receipt Date: 20241119
  Transmission Date: 20250114
  Serious: Yes (Death, Life-Threatening, Hospitalization)
  Sender: MACLEODS
  Company Number: IT-MACLEODS PHARMA-MAC2024050297

PATIENT

DRUGS (6)
  1. POTASSIUM CHLORIDE [Suspect]
     Active Substance: POTASSIUM CHLORIDE
     Indication: Product used for unknown indication
     Dosage: 1 VIAL OF KCL DILUTED IN 500 ML OF SALINE
     Route: 065
  2. POTASSIUM CHLORIDE [Suspect]
     Active Substance: POTASSIUM CHLORIDE
     Dosage: 2 VIALS OF KCL IN 3  L OF 0.9% SALINE SOLUTION ADMINISTERED AT A RATE OF 60 ML/H.
     Route: 065
  3. ASPIRIN [Suspect]
     Active Substance: ASPIRIN
     Indication: Product used for unknown indication
     Dosage: ASA (ACETYLSALICYLIC ACID)
     Route: 065
  4. SALINE [Suspect]
     Active Substance: SODIUM CHLORIDE
     Indication: Product used for unknown indication
     Dosage: 500 ML OF 0.9%
     Route: 065
  5. SODIUM CHLORIDE [Suspect]
     Active Substance: SODIUM CHLORIDE
     Indication: Product used for unknown indication
     Dosage: 2 VIALS OF NACL
     Route: 065
  6. SODIUM BICARBONATE [Suspect]
     Active Substance: SODIUM BICARBONATE
     Indication: Product used for unknown indication
     Dosage: NAHCO3
     Route: 065

REACTIONS (8)
  - Osmotic demyelination syndrome [Fatal]
  - Coma [Fatal]
  - Metabolic alkalosis [Unknown]
  - Erythema [Unknown]
  - Hypothermia [Unknown]
  - Anaemia [Unknown]
  - Brain oedema [Unknown]
  - Extra dose administered [Unknown]
